FAERS Safety Report 6196415-4 (Version None)
Quarter: 2009Q2

REPORT INFORMATION
  Report Type: 
  Country: None (occurrence: None)
  Receive Date: 20090518
  Receipt Date: 20090507
  Transmission Date: 20091009
  Serious: Yes (Other)
  Sender: FDA-Public Use
  Company Number: GXKR2009IN04559

PATIENT
  Age: 32 Year
  Sex: Male

DRUGS (7)
  1. TRAMADOL HCL [Suspect]
     Indication: ARTHRALGIA
     Dosage: 1 DF, ONCE/SINGLE,
  2. TRAMADOL HCL [Suspect]
     Indication: PAIN
     Dosage: 1 DF, ONCE/SINGLE,
  3. CETIRIZINE HCL [Concomitant]
  4. ALBENDAZOLE            (ALBENDAZOLE) [Concomitant]
  5. PHENYTOIN [Concomitant]
  6. CORTICOSTEROID NOS           (CORTICOSTEROID NOS) [Concomitant]
  7. RANITIDINE [Concomitant]

REACTIONS (5)
  - AGGRESSION [None]
  - DELIRIUM [None]
  - HYPERHIDROSIS [None]
  - RED BLOOD CELL SEDIMENTATION RATE INCREASED [None]
  - TACHYCARDIA [None]
